FAERS Safety Report 8235452-2 (Version None)
Quarter: 2012Q1

REPORT INFORMATION
  Report Type: 
  Country: None (occurrence: None)
  Receive Date: 20120326
  Receipt Date: 20120319
  Transmission Date: 20120608
  Serious: Yes (Other)
  Sender: FDA-Public Use
  Company Number: PHHY2012BR025025

PATIENT
  Sex: Female

DRUGS (4)
  1. AMARYL [Suspect]
     Indication: DIABETES MELLITUS
     Dosage: 1 DF, DAILY
  2. GALVUS MET [Suspect]
     Dosage: 2 DF (1000 MG METF AND 50 MG VILDA), DAILY
  3. METFORMIN HCL [Suspect]
     Dosage: 2 DF (850 MG), DAILY
  4. METFORMIN HCL [Suspect]
     Indication: DIABETES MELLITUS
     Dosage: 2 DF (500 MG), UNK

REACTIONS (6)
  - PRODUCTIVE COUGH [None]
  - BLOOD GLUCOSE FLUCTUATION [None]
  - VARICOSE VEIN [None]
  - SINUSITIS [None]
  - HYPERTENSION [None]
  - HEART RATE INCREASED [None]
